FAERS Safety Report 15299013 (Version 3)
Quarter: 2018Q4

REPORT INFORMATION
  Report Type: Spontaneous
  Country: CA (occurrence: CA)
  Receive Date: 20180821
  Receipt Date: 20181227
  Transmission Date: 20190204
  Serious: Yes (Other)
  Sender: FDA-Public Use
  Company Number: CA-CELLTRION INC.-2016CA014392

PATIENT

DRUGS (11)
  1. PROMETRIUM [Concomitant]
     Active Substance: PROGESTERONE
     Dosage: 100 MG, 1X/DAY
  2. INFLECTRA [Suspect]
     Active Substance: INFLIXIMAB-DYYB
     Dosage: 225 MG, EVERY 6 WEEKS
     Route: 042
     Dates: start: 20181213
  3. INFLECTRA [Suspect]
     Active Substance: INFLIXIMAB-DYYB
     Indication: PSORIATIC ARTHROPATHY
     Dosage: 225 MG, CYCLIC (EVERY 2, 6 WEEKS, THEN EVERY 8 WEEKS FOR 12 MONTHS)
     Route: 042
     Dates: start: 20161215
  4. INFLECTRA [Suspect]
     Active Substance: INFLIXIMAB-DYYB
     Dosage: 225 MG, EVERY 6 WEEKS
  5. ESTRACE [Concomitant]
     Active Substance: ESTRADIOL
     Dosage: 37.5 MG, UNK
  6. INFLECTRA [Suspect]
     Active Substance: INFLIXIMAB-DYYB
     Dosage: 225 MG, EVERY 6 WEEKS
     Route: 042
     Dates: start: 20180809
  7. INFLECTRA [Suspect]
     Active Substance: INFLIXIMAB-DYYB
     Dosage: 225 MG, EVERY 6 WEEKS
     Route: 042
     Dates: start: 20180111
  8. INFLECTRA [Suspect]
     Active Substance: INFLIXIMAB-DYYB
     Dosage: 225 MG, EVERY 6 WEEKS
     Route: 042
     Dates: start: 20181101
  9. VITAMIN D [Concomitant]
     Active Substance: CHOLECALCIFEROL
     Dosage: UNK
  10. CALCIUM [Concomitant]
     Active Substance: CALCIUM
     Dosage: 800 MG, UNK
  11. VITAMIN B12 [Concomitant]
     Active Substance: CYANOCOBALAMIN
     Dosage: UNK

REACTIONS (23)
  - Flushing [Unknown]
  - Vitamin D decreased [Unknown]
  - Hordeolum [Recovering/Resolving]
  - Insomnia [Unknown]
  - Product use issue [Unknown]
  - Abdominal distension [Unknown]
  - Oropharyngeal pain [Unknown]
  - Feeling cold [Unknown]
  - Heart rate decreased [Unknown]
  - Constipation [Unknown]
  - Lethargy [Unknown]
  - Abdominal discomfort [Unknown]
  - Headache [Unknown]
  - Flatulence [Unknown]
  - Blood pressure fluctuation [Unknown]
  - Skin haemorrhage [Not Recovered/Not Resolved]
  - Oral herpes [Recovered/Resolved]
  - Neutropenia [Unknown]
  - Gastrointestinal sounds abnormal [Unknown]
  - Dizziness [Unknown]
  - Nausea [Unknown]
  - Fatigue [Not Recovered/Not Resolved]
  - Nervousness [Not Recovered/Not Resolved]

NARRATIVE: CASE EVENT DATE: 20161228
